FAERS Safety Report 11992573 (Version 1)
Quarter: 2016Q1

REPORT INFORMATION
  Report Type: Spontaneous
  Country: US (occurrence: US)
  Receive Date: 20160203
  Receipt Date: 20160203
  Transmission Date: 20160526
  Serious: No
  Sender: FDA-Public Use
  Company Number: US-UCBSA-2015010538

PATIENT
  Age: 11 Year
  Sex: Female

DRUGS (3)
  1. CLONOPIN [Concomitant]
     Active Substance: CLONAZEPAM
     Indication: SEIZURE
     Dosage: UNK, ONCE DAILY (QD)
  2. TRILEPTAL [Suspect]
     Active Substance: OXCARBAZEPINE
     Indication: PRODUCT USED FOR UNKNOWN INDICATION
     Dosage: UNK, 2X/DAY (BID)
  3. KEPPRA [Suspect]
     Active Substance: LEVETIRACETAM
     Indication: SEIZURE
     Dosage: UNKNOWN

REACTIONS (3)
  - Drug ineffective [Unknown]
  - Abnormal behaviour [Unknown]
  - Depression [Unknown]
